FAERS Safety Report 5955790-3 (Version None)
Quarter: 2008Q4

REPORT INFORMATION
  Report Type: 
  Country: None (occurrence: None)
  Receive Date: 20081117
  Receipt Date: 20081103
  Transmission Date: 20090506
  Serious: Yes (Hospitalization)
  Sender: FDA-Public Use
  Company Number: FR-B.I. PHARMACEUTICALS,INC./RIDGEFIELD-2008-FF-00372FF

PATIENT
  Sex: Female

DRUGS (2)
  1. VIRAMUNE [Suspect]
     Indication: HIV INFECTION
     Dosage: 200MG
     Route: 048
     Dates: start: 20080418, end: 20080424
  2. TRUVADA [Suspect]
     Indication: HIV INFECTION
     Dosage: 200/245 MG
     Route: 048
     Dates: start: 20080418, end: 20080424

REACTIONS (4)
  - BLOOD LACTATE DEHYDROGENASE INCREASED [None]
  - PYREXIA [None]
  - TOXIC SKIN ERUPTION [None]
  - TRANSAMINASES INCREASED [None]
